FAERS Safety Report 5509446-1 (Version None)
Quarter: 2007Q4

REPORT INFORMATION
  Report Type: 
  Country: None (occurrence: None)
  Receive Date: 20071107
  Receipt Date: 20060120
  Transmission Date: 20080405
  Serious: Yes (Other)
  Sender: FDA-Public Use
  Company Number: ZA-ALLERGAN-200600613

PATIENT
  Age: 49 Year
  Sex: Female
  Weight: 85 kg

DRUGS (2)
  1. RESTASIS [Suspect]
     Indication: CORNEAL GRAFT REJECTION
     Dosage: 1GTT, QID
     Route: 047
     Dates: start: 20051202, end: 20051212
  2. PRED FORTE [Concomitant]
     Indication: CORNEAL TRANSPLANT

REACTIONS (6)
  - DYSPHAGIA [None]
  - DYSPNOEA [None]
  - PHARYNGEAL OEDEMA [None]
  - PRURITUS [None]
  - SWOLLEN TONGUE [None]
  - THROAT IRRITATION [None]
